FAERS Safety Report 16802373 (Version 1)
Quarter: 2019Q3

REPORT INFORMATION
  Report Type: Spontaneous
  Country: US (occurrence: US)
  Receive Date: 20190912
  Receipt Date: 20190912
  Transmission Date: 20191005
  Serious: Yes (Other)
  Sender: FDA-Public Use
  Company Number: PHEH2019US036727

PATIENT
  Age: 51 Year
  Sex: Female
  Weight: 80.74 kg

DRUGS (4)
  1. ALPRAZOLAM. [Suspect]
     Active Substance: ALPRAZOLAM
     Indication: ANXIETY
     Dosage: 1 DF, TID
     Route: 048
  2. DOXEPIN [Suspect]
     Active Substance: DOXEPIN
     Indication: DEPRESSION
     Dosage: 150 MG, UNK (ONCE NIGHTLY)
     Route: 048
  3. LYRICA [Suspect]
     Active Substance: PREGABALIN
     Indication: NERVE INJURY
     Dosage: 150 MG, TID
     Route: 048
     Dates: end: 20190515
  4. OXYCODONE [Suspect]
     Active Substance: OXYCODONE
     Indication: PAIN
     Dosage: 1 DF, TID
     Route: 048

REACTIONS (4)
  - Dysphonia [Unknown]
  - Drug dependence [Not Recovered/Not Resolved]
  - Weight increased [Unknown]
  - Breast cancer [Unknown]

NARRATIVE: CASE EVENT DATE: 201108
